FAERS Safety Report 8519017-0 (Version None)
Quarter: 2012Q3

REPORT INFORMATION
  Report Type: 
  Country: None (occurrence: None)
  Receive Date: 20120718
  Receipt Date: 20120705
  Transmission Date: 20120928
  Serious: No
  Sender: FDA-Public Use
  Company Number: US-BAYER-2012-067439

PATIENT
  Age: 55 Year
  Sex: Female

DRUGS (9)
  1. MULTIVITAMIN PREPARATION + MINERAL SUPPLEMENT [Concomitant]
  2. EFFEXOR [Concomitant]
     Dosage: 25 MG, UNK
  3. KLONOPIN [Concomitant]
     Dosage: 2 MG, UNK
  4. CALCIUM [Concomitant]
     Dosage: 600
  5. LYRICA [Concomitant]
     Dosage: 100 MG, UNK
  6. TRAMADOL HCL [Concomitant]
     Dosage: 50 MG, UNK
  7. FISH OIL [Concomitant]
  8. BETASERON [Suspect]
     Dosage: .3 MG, QOD
     Route: 058
  9. BACLOFEN [Concomitant]
     Dosage: 10 MG, UNK

REACTIONS (4)
  - OEDEMA PERIPHERAL [None]
  - HYPOAESTHESIA [None]
  - PAIN [None]
  - INFLUENZA LIKE ILLNESS [None]
